FAERS Safety Report 4532111-4 (Version None)
Quarter: 2004Q4

REPORT INFORMATION
  Report Type: 
  Country: None (occurrence: None)
  Receive Date: 20041217
  Receipt Date: 20041203
  Transmission Date: 20050328
  Serious: Yes (Other)
  Sender: FDA-Public Use
  Company Number: 211064

PATIENT
  Sex: Female

DRUGS (1)
  1. HERCEPTIN [Suspect]
     Dosage: INTRAVENOUS
     Route: 042

REACTIONS (3)
  - CELLULITIS [None]
  - INFUSION SITE REACTION [None]
  - INJECTION SITE EXTRAVASATION [None]
